FAERS Safety Report 21098120 (Version 2)
Quarter: 2022Q3

REPORT INFORMATION
  Report Type: Report from Study
  Country: US (occurrence: US)
  Receive Date: 20220719
  Receipt Date: 20220919
  Transmission Date: 20221027
  Serious: Yes (Other)
  Sender: FDA-Public Use
  Company Number: US-BRISTOL-MYERS SQUIBB COMPANY-2022-033948

PATIENT
  Age: 74 Year
  Sex: Female
  Weight: 90.9 kg

DRUGS (10)
  1. REVLIMID [Suspect]
     Active Substance: LENALIDOMIDE
     Indication: Plasma cell myeloma
     Dosage: DAYS 1-14 ,7DAYS OFF
     Route: 048
     Dates: start: 20210702
  2. REVLIMID [Suspect]
     Active Substance: LENALIDOMIDE
     Dosage: 14 OUT OF 21 DAYS
     Route: 048
     Dates: start: 20210702
  3. REVLIMID [Suspect]
     Active Substance: LENALIDOMIDE
     Route: 065
  4. VITAMIN C [Concomitant]
     Active Substance: ASCORBIC ACID
     Indication: Product used for unknown indication
     Route: 048
  5. ALBUTEROL SULFATE [Concomitant]
     Active Substance: ALBUTEROL SULFATE
     Indication: Product used for unknown indication
     Route: 048
  6. ASPIRIN [Concomitant]
     Active Substance: ASPIRIN
     Indication: Product used for unknown indication
     Route: 048
  7. VITAMIN D3 [Concomitant]
     Active Substance: CHOLECALCIFEROL
     Indication: Product used for unknown indication
     Route: 048
  8. VELCADE [Concomitant]
     Active Substance: BORTEZOMIB
     Indication: Product used for unknown indication
     Route: 048
  9. FLONASE ALLERGY RELIEF [Concomitant]
     Active Substance: FLUTICASONE PROPIONATE
     Indication: Product used for unknown indication
  10. STOOL SOFTENER (DOCUSATE) [Concomitant]
     Active Substance: DOCUSATE
     Indication: Product used for unknown indication

REACTIONS (13)
  - Ageusia [Recovering/Resolving]
  - Asthenia [Unknown]
  - Arthritis [Unknown]
  - Neuropathy peripheral [Unknown]
  - Dry mouth [Unknown]
  - Eye pruritus [Unknown]
  - Paranasal sinus hypersecretion [Unknown]
  - Fatigue [Unknown]
  - Nail bed disorder [Unknown]
  - Tremor [Unknown]
  - Dizziness [Unknown]
  - Weight decreased [Unknown]
  - Off label use [Unknown]
